FAERS Safety Report 9201854 (Version 2)
Quarter: 2013Q2

REPORT INFORMATION
  Report Type: Report from Study
  Country: US (occurrence: US)
  Receive Date: 20130401
  Receipt Date: 20130404
  Transmission Date: 20140414
  Serious: Yes (Hospitalization, Other)
  Sender: FDA-Public Use
  Company Number: US-ROCHE-1207238

PATIENT
  Age: 70 Year
  Sex: Male
  Weight: 82.4 kg

DRUGS (2)
  1. XELODA [Suspect]
     Indication: SMALL INTESTINE CARCINOMA
     Route: 048
     Dates: end: 20130316
  2. BEVACIZUMAB [Concomitant]
     Route: 042

REACTIONS (3)
  - Intestinal obstruction [Unknown]
  - Gastrointestinal inflammation [Unknown]
  - Small intestinal obstruction [Recovered/Resolved]
